FAERS Safety Report 5707831-6 (Version None)
Quarter: 2008Q2

REPORT INFORMATION
  Report Type: 
  Country: None (occurrence: None)
  Receive Date: 20080417
  Receipt Date: 20080408
  Transmission Date: 20081010
  Serious: Yes (Other)
  Sender: FDA-Public Use
  Company Number: GB-JNJFOC-20080402562

PATIENT
  Sex: Female
  Weight: 75 kg

DRUGS (10)
  1. REMICADE [Suspect]
     Indication: RHEUMATOID ARTHRITIS
     Route: 042
  2. METHOTREXATE [Concomitant]
  3. PREDNISOLONE [Concomitant]
  4. AMITRIPTYLINE HCL [Concomitant]
  5. LEUCOVORIN CALCIUM [Concomitant]
  6. DIDRONEL [Concomitant]
  7. EPOGAM [Concomitant]
  8. IBUPROFEN [Concomitant]
  9. OMEPRAZOLE [Concomitant]
  10. PIZOTIFEN [Concomitant]

REACTIONS (1)
  - BREAST CANCER [None]
